FAERS Safety Report 9291770 (Version 2)
Quarter: 2013Q2

REPORT INFORMATION
  Report Type: Spontaneous
  Country: FR (occurrence: FR)
  Receive Date: 20130516
  Receipt Date: 20130520
  Transmission Date: 20140414
  Serious: Yes (Hospitalization, Other)
  Sender: FDA-Public Use
  Company Number: FR-RANBAXY-2013RR-68226

PATIENT
  Sex: Female
  Weight: 1.1 kg

DRUGS (25)
  1. AMOXICILLIN [Suspect]
     Indication: MATERNAL EXPOSURE TIMING UNSPECIFIED
     Dosage: UNK
     Route: 064
     Dates: start: 20120304, end: 20120316
  2. MIDAZOLAM [Suspect]
     Indication: MATERNAL EXPOSURE TIMING UNSPECIFIED
     Dosage: UNK
     Route: 064
     Dates: start: 20120304, end: 20120323
  3. CEFTRIAXONE [Suspect]
     Indication: MATERNAL EXPOSURE TIMING UNSPECIFIED
     Dosage: UNK
     Route: 064
     Dates: start: 20120304, end: 20120311
  4. ZOPHREN [Suspect]
     Indication: MATERNAL EXPOSURE TIMING UNSPECIFIED
     Dosage: 12 MG/DAY
     Route: 064
     Dates: start: 20120321, end: 20120324
  5. HYPNOVEL [Suspect]
     Indication: MATERNAL EXPOSURE TIMING UNSPECIFIED
     Dosage: UNK
     Route: 064
     Dates: start: 20120317
  6. ATRACURIUM BESYLATE [Suspect]
     Indication: MATERNAL EXPOSURE TIMING UNSPECIFIED
     Dosage: UNK
     Route: 064
     Dates: start: 20120304, end: 20120304
  7. SUFENTANIL [Suspect]
     Indication: MATERNAL EXPOSURE TIMING UNSPECIFIED
     Dosage: UNK
     Route: 064
     Dates: start: 20120316, end: 20120323
  8. SUFENTA [Suspect]
     Indication: MATERNAL EXPOSURE TIMING UNSPECIFIED
     Dosage: UNK
     Route: 064
     Dates: start: 20120317
  9. TAZOCILLINE [Suspect]
     Indication: MATERNAL EXPOSURE TIMING UNSPECIFIED
     Dosage: UNK
     Route: 064
     Dates: start: 20120316, end: 20120320
  10. CELESTENE [Suspect]
     Indication: MATERNAL EXPOSURE TIMING UNSPECIFIED
     Dosage: UNK
     Route: 064
     Dates: start: 20120316, end: 20120317
  11. CELESTENE [Suspect]
     Indication: MATERNAL EXPOSURE TIMING UNSPECIFIED
     Dosage: UNK
     Route: 064
     Dates: start: 20120424, end: 20120425
  12. KETAMINE [Suspect]
     Indication: MATERNAL EXPOSURE TIMING UNSPECIFIED
     Dosage: UNK
     Route: 064
     Dates: start: 20120316, end: 20120320
  13. PERFALGAN [Suspect]
     Indication: MATERNAL EXPOSURE TIMING UNSPECIFIED
     Dosage: UNK
     Route: 064
     Dates: start: 20120324, end: 20120325
  14. PERFALGAN [Suspect]
     Dosage: 1 G, QID (IF BODY TEMPERATURE WAS UPPPER 38 DEGREES)
     Route: 064
     Dates: start: 20120326
  15. TRACTOCILE [Suspect]
     Indication: MATERNAL EXPOSURE TIMING UNSPECIFIED
     Dosage: UNK
     Route: 064
     Dates: start: 20120324, end: 20120326
  16. TRACTOCILE [Suspect]
     Dosage: ELECTRICAL SYRINGE PUMP, 1 AMPOULE, 45 SPEED 8
     Route: 064
     Dates: start: 20120326
  17. INEXIUM [Suspect]
     Indication: MATERNAL EXPOSURE TIMING UNSPECIFIED
     Dosage: 40 MG, QD
     Route: 064
     Dates: start: 20120319, end: 20120325
  18. LOVENOX [Suspect]
     Indication: MATERNAL EXPOSURE TIMING UNSPECIFIED
     Dosage: 40 UNITS, ONCE DAILY
     Route: 064
     Dates: start: 20120304, end: 20120426
  19. OLICLINOMEL [Suspect]
     Indication: MATERNAL EXPOSURE TIMING UNSPECIFIED
     Dosage: 1500 ML, DAILY
     Route: 064
     Dates: start: 20120326
  20. KABIVEN [Suspect]
     Indication: MATERNAL EXPOSURE TIMING UNSPECIFIED
     Dosage: UNK
     Dates: start: 20120304, end: 20120316
  21. PROPOFOL [Suspect]
     Indication: MATERNAL EXPOSURE TIMING UNSPECIFIED
     Dosage: UNK
     Route: 064
     Dates: start: 20120310, end: 20120316
  22. FUMAFER [Suspect]
     Indication: MATERNAL EXPOSURE TIMING UNSPECIFIED
     Dosage: UNK
     Route: 064
     Dates: start: 20120304, end: 20120316
  23. TAMIFLU [Suspect]
     Indication: MATERNAL EXPOSURE TIMING UNSPECIFIED
     Dosage: UNK
     Route: 064
     Dates: start: 20120310, end: 20120316
  24. RULID [Suspect]
     Indication: MATERNAL EXPOSURE DURING PREGNANCY
     Dosage: UNK
     Route: 064
     Dates: start: 20120310, end: 20120316
  25. EMLA [Concomitant]
     Indication: MATERNAL EXPOSURE TIMING UNSPECIFIED
     Dosage: UNK
     Route: 064
     Dates: start: 20120426

REACTIONS (10)
  - Foetal growth restriction [Recovering/Resolving]
  - Apnoea neonatal [Recovered/Resolved]
  - Feeding disorder neonatal [Recovered/Resolved]
  - Device related sepsis [Recovered/Resolved]
  - Oligohydramnios [Recovered/Resolved]
  - Jaundice acholuric [Recovered/Resolved]
  - Inflammation [Recovered/Resolved]
  - Cerebral haemorrhage foetal [Recovered/Resolved]
  - Foetal exposure during pregnancy [Recovered/Resolved]
  - Premature baby [Recovered/Resolved]
